FAERS Safety Report 4361256-7 (Version None)
Quarter: 2004Q2

REPORT INFORMATION
  Report Type: 
  Country: None (occurrence: None)
  Receive Date: 20040520
  Receipt Date: 20040508
  Transmission Date: 20050107
  Serious: Yes (Other)
  Sender: FDA-Public Use
  Company Number: PHBS2004JO06306

PATIENT
  Age: 63 Year
  Sex: Female
  Weight: 96 kg

DRUGS (3)
  1. FEMARA [Suspect]
     Indication: BREAST CANCER
     Dosage: 2.5 MG/D
     Route: 048
  2. DIAMICRON [Concomitant]
  3. GLUCOPHAGE ^HOECHST^ [Concomitant]

REACTIONS (2)
  - BLOOD GLUCOSE ABNORMAL [None]
  - DIABETES MELLITUS INADEQUATE CONTROL [None]
